FAERS Safety Report 23231601 (Version 1)
Quarter: 2023Q4

REPORT INFORMATION
  Report Type: Report from Study
  Country: PH (occurrence: PH)
  Receive Date: 20231127
  Receipt Date: 20231127
  Transmission Date: 20240109
  Serious: Yes (Hospitalization)
  Sender: FDA-Public Use
  Company Number: PH-OTSUKA-2023_030415

PATIENT
  Age: 75 Year
  Sex: Male

DRUGS (1)
  1. TOLVAPTAN [Suspect]
     Active Substance: TOLVAPTAN
     Indication: Product used for unknown indication
     Dosage: UNK UNK, TIW HALF TABLET OF 15 MG, EVERY MONDAY, WEDNESDAY, AND FRIDAY)
     Route: 048

REACTIONS (4)
  - Prostatic disorder [Recovered/Resolved]
  - Urinary retention [Recovered/Resolved]
  - Inappropriate schedule of product administration [Unknown]
  - Wrong technique in product usage process [Unknown]

NARRATIVE: CASE EVENT DATE: 20231001
